FAERS Safety Report 16533694 (Version 1)
Quarter: 2019Q3

REPORT INFORMATION
  Report Type: Spontaneous
  Country: US (occurrence: US)
  Receive Date: 20190705
  Receipt Date: 20190705
  Transmission Date: 20191004
  Serious: No
  Sender: FDA-Public Use
  Company Number: US-AVERITAS PHARMA, INC.-2019-13741

PATIENT

DRUGS (1)
  1. QUTENZA [Suspect]
     Active Substance: CAPSAICIN
     Indication: PRODUCT USED FOR UNKNOWN INDICATION
     Dosage: UNK
     Route: 061

REACTIONS (3)
  - Application site erythema [Not Recovered/Not Resolved]
  - Drug ineffective [Unknown]
  - Application site burn [Not Recovered/Not Resolved]
